FAERS Safety Report 9972320 (Version 1)
Quarter: 2014Q1

REPORT INFORMATION
  Report Type: Report from Study
  Country: US (occurrence: US)
  Receive Date: 20140306
  Receipt Date: 20140306
  Transmission Date: 20141002
  Serious: No
  Sender: FDA-Public Use
  Company Number: US-ABBVIE-13P-163-1151451-00

PATIENT
  Age: 71 Year
  Sex: Female

DRUGS (12)
  1. HUMIRA [Suspect]
     Dates: start: 20130510
  2. SINGULAIR [Concomitant]
     Indication: HYPERSENSITIVITY
     Dosage: 10 MG DAILY
  3. SINGULAIR [Concomitant]
     Indication: ASTHMA
  4. ENTOCORT [Concomitant]
     Indication: CROHN^S DISEASE
     Dosage: 3 MG DAILY (DECREASED FROM 6 MG)
  5. FINACEA [Concomitant]
     Indication: ROSACEA
  6. CALCIUM PLUS VITAMIN D [Concomitant]
     Indication: PRODUCT USED FOR UNKNOWN INDICATION
  7. MULTIVITAMIN [Concomitant]
     Indication: PRODUCT USED FOR UNKNOWN INDICATION
  8. GUAIFENESIN [Concomitant]
     Indication: HYPERSENSITIVITY
     Dosage: DAILY
  9. GUAIFENESIN [Concomitant]
     Indication: ASTHMA
  10. ALLEGRA [Concomitant]
     Indication: PRODUCT USED FOR UNKNOWN INDICATION
     Dosage: 180 MG DAILY
  11. PRESERVISION [Concomitant]
     Indication: MACULAR DEGENERATION
     Dosage: 4 TABS DAILY
  12. LUTEIN [Concomitant]
     Indication: MACULAR DEGENERATION
     Dosage: 6 MG DAILY

REACTIONS (2)
  - Throat irritation [Not Recovered/Not Resolved]
  - Rhinorrhoea [Not Recovered/Not Resolved]
